FAERS Safety Report 10116629 (Version 2)
Quarter: 2015Q1

REPORT INFORMATION
  Report Type: Other
  Country: US (occurrence: US)
  Receive Date: 20140426
  Receipt Date: 20150218
  Transmission Date: 20150720
  Serious: Yes (Hospitalization, Other)
  Sender: FDA-Public Use
  Company Number: US-GSKPPD-2014GSK017479

PATIENT
  Age: 53 Year
  Sex: Male

DRUGS (7)
  1. ATENOLOL. [Concomitant]
     Active Substance: ATENOLOL
  2. COUMADIN [Concomitant]
     Active Substance: WARFARIN SODIUM
  3. NORVASC [Concomitant]
     Active Substance: AMLODIPINE BESYLATE
  4. AMIODARONE [Concomitant]
     Active Substance: AMIODARONE
  5. AVANDIA [Suspect]
     Active Substance: ROSIGLITAZONE MALEATE
     Indication: DIABETES MELLITUS
     Dosage: AVANDIA WAS NOT LISTED AMONG THE PATIENT^S RECORDS REVIEWED.
     Route: 048
  6. DIGOXIN. [Concomitant]
     Active Substance: DIGOXIN
  7. ASPIRIN. [Concomitant]
     Active Substance: ASPIRIN

REACTIONS (1)
  - Vascular graft [Recovered/Resolved]

NARRATIVE: CASE EVENT DATE: 20020916
